FAERS Safety Report 18227578 (Version 1)
Quarter: 2020Q3

REPORT INFORMATION
  Report Type: Spontaneous
  Country: US (occurrence: US)
  Receive Date: 20200903
  Receipt Date: 20200903
  Transmission Date: 20201103
  Serious: No
  Sender: FDA-Public Use
  Company Number: None

PATIENT
  Age: 76 Year
  Sex: Female

DRUGS (23)
  1. ADULT CLINIMIX E PTN [Concomitant]
  2. ALBUTEROL. [Concomitant]
     Active Substance: ALBUTEROL
  3. CEFTRIAXONE. [Concomitant]
     Active Substance: CEFTRIAXONE
  4. DULOXETINE DR [Concomitant]
     Active Substance: DULOXETINE
  5. GABAPENTIN. [Concomitant]
     Active Substance: GABAPENTIN
  6. LEVOTHYROXINE. [Concomitant]
     Active Substance: LEVOTHYROXINE
  7. TOCILIZUMAB. [Concomitant]
     Active Substance: TOCILIZUMAB
  8. DEXAMETHASONE. [Concomitant]
     Active Substance: DEXAMETHASONE
  9. DEXMEDETOMIDINE IN NS [Concomitant]
  10. AZITHROMYCIN ANHYDROUS. [Concomitant]
     Active Substance: AZITHROMYCIN ANHYDROUS
  11. BENZONATATE. [Concomitant]
     Active Substance: BENZONATATE
  12. BUDESONIDE. [Concomitant]
     Active Substance: BUDESONIDE
  13. FAMOTIDINE. [Concomitant]
     Active Substance: FAMOTIDINE
  14. ACETAMINOPHEN. [Concomitant]
     Active Substance: ACETAMINOPHEN
  15. MORPHINE IV [Concomitant]
     Active Substance: MORPHINE
  16. REMDESIVIR. [Suspect]
     Active Substance: REMDESIVIR
     Indication: COVID-19
     Dates: start: 20200801, end: 20200805
  17. CODEINE/GUAIFENESIN [Concomitant]
     Active Substance: CODEINE\GUAIFENESIN
  18. LORAZEPAM. [Concomitant]
     Active Substance: LORAZEPAM
  19. ROPINIROLE. [Concomitant]
     Active Substance: ROPINIROLE
  20. FUROSEMIDE. [Concomitant]
     Active Substance: FUROSEMIDE
  21. ENOXAPARIN [Concomitant]
     Active Substance: ENOXAPARIN
  22. ONDANSETRON [Concomitant]
     Active Substance: ONDANSETRON
  23. POTASSIUM PHOSPHATES IN NS [Concomitant]

REACTIONS (10)
  - Blood urea increased [None]
  - Blood albumin decreased [None]
  - Alanine aminotransferase increased [None]
  - Platelet count decreased [None]
  - Hypoxia [None]
  - Aspartate aminotransferase increased [None]
  - Blood calcium decreased [None]
  - Blood glucose increased [None]
  - Blood alkaline phosphatase increased [None]
  - Acute respiratory failure [None]
